FAERS Safety Report 5762041-1 (Version None)
Quarter: 2008Q2

REPORT INFORMATION
  Report Type: 
  Country: None (occurrence: None)
  Receive Date: 20080603
  Receipt Date: 20080526
  Transmission Date: 20081010
  Serious: Yes (Other)
  Sender: FDA-Public Use
  Company Number: GXKR2007GB01762

PATIENT
  Age: 68 Year
  Sex: Male
  Weight: 78 kg

DRUGS (9)
  1. AMIODARONE HCL [Suspect]
     Dosage: 200 MG, QD
  2. ACETYLSALICYLIC ACID SRT [Suspect]
     Dosage: 75 MG, QD
  3. BISOPROLOL FUMARATE [Suspect]
     Dosage: 7.5, QD
  4. FUROSEMIDE [Suspect]
     Dosage: 80 MG, BID; 120 MG, BID
  5. ACIPIMOX (ACIPIMOX) [Suspect]
     Dosage: 250 MG, BID
  6. DIGOXIN [Suspect]
     Dosage: 0.125 MG, QD
  7. EZETROL (EZETIMIBE) [Suspect]
     Dosage: 10 MG, QD
  8. LANSOPRAZOLE [Suspect]
  9. PERINDOPRIL ERBUMINE [Suspect]
     Dosage: 2 MG, QD

REACTIONS (11)
  - ATRIAL FIBRILLATION [None]
  - CARDIAC MURMUR [None]
  - DIZZINESS [None]
  - DYSPNOEA [None]
  - FATIGUE [None]
  - FEELING ABNORMAL [None]
  - OEDEMA [None]
  - OVERSENSING [None]
  - PARAESTHESIA [None]
  - VENOUS PRESSURE JUGULAR INCREASED [None]
  - VENTRICULAR TACHYCARDIA [None]
